FAERS Safety Report 10016835 (Version 1)
Quarter: 2014Q1

REPORT INFORMATION
  Report Type: Spontaneous
  Country: SK (occurrence: SK)
  Receive Date: 20140318
  Receipt Date: 20140318
  Transmission Date: 20141002
  Serious: Yes (Death)
  Sender: FDA-Public Use
  Company Number: SK-ROCHE-1366329

PATIENT
  Age: 48 Year
  Sex: Female
  Weight: 70.1 kg

DRUGS (1)
  1. XOLAIR [Suspect]
     Indication: PRODUCT USED FOR UNKNOWN INDICATION
     Route: 058
     Dates: start: 20081015, end: 20131216

REACTIONS (3)
  - Rectal cancer stage IV [Fatal]
  - Disease progression [Fatal]
  - Malignant ascites [Fatal]
